FAERS Safety Report 12932611 (Version 2)
Quarter: 2017Q3

REPORT INFORMATION
  Report Type: Spontaneous
  Country: GR (occurrence: GR)
  Receive Date: 20161111
  Receipt Date: 20170920
  Transmission Date: 20171127
  Serious: Yes (Other)
  Sender: FDA-Public Use
  Company Number: PHHY2016GR152541

PATIENT
  Age: 75 Year
  Sex: Male

DRUGS (3)
  1. DENOSUMAB [Suspect]
     Active Substance: DENOSUMAB
     Indication: PROSTATE CANCER METASTATIC
     Dosage: UNK
     Route: 065
     Dates: start: 201404, end: 201410
  2. LUTEINIZING HORMONE-RELEASING HORMONE [Suspect]
     Active Substance: LUTEINIZING HORMONE
     Indication: PROSTATE CANCER METASTATIC
     Dosage: UNK
     Route: 065
     Dates: start: 201304
  3. ZOLEDRONATE [Suspect]
     Active Substance: ZOLEDRONIC ACID
     Indication: PROSTATE CANCER METASTATIC
     Dosage: UNK
     Route: 065
     Dates: start: 201304, end: 201404

REACTIONS (6)
  - Exposed bone in jaw [Unknown]
  - Bone fistula [Unknown]
  - Malignant neoplasm progression [Unknown]
  - Osteonecrosis of jaw [Not Recovered/Not Resolved]
  - Bone pain [Unknown]
  - Prostate cancer metastatic [Unknown]

NARRATIVE: CASE EVENT DATE: 201408
